FAERS Safety Report 13620111 (Version 1)
Quarter: 2017Q2

REPORT INFORMATION
  Report Type: Spontaneous
  Country: US (occurrence: US)
  Receive Date: 20170607
  Receipt Date: 20170607
  Transmission Date: 20170830
  Serious: No
  Sender: FDA-Public Use
  Company Number: US-ARALEZ PHARMACEUTICALS R+D INC.-ARA-TP-US-2017-598

PATIENT
  Sex: Male

DRUGS (3)
  1. METOPROLOL SUCCINATE. [Suspect]
     Active Substance: METOPROLOL SUCCINATE
     Indication: HYPERTENSION
     Dosage: 10 PM EVERY NIGHT
     Route: 048
  2. CARAFATE [Concomitant]
     Active Substance: SUCRALFATE
     Indication: PRODUCT USED FOR UNKNOWN INDICATION
     Dosage: 10 PM EVERY NIGHT
  3. PROPOFOL. [Interacting]
     Active Substance: PROPOFOL
     Indication: ANAESTHESIA

REACTIONS (4)
  - Abdominal pain upper [Unknown]
  - Drug interaction [Unknown]
  - Blood pressure fluctuation [Unknown]
  - Somnolence [Unknown]
